FAERS Safety Report 6611437-4 (Version None)
Quarter: 2010Q1

REPORT INFORMATION
  Report Type: 
  Country: None (occurrence: None)
  Receive Date: 20100303
  Receipt Date: 20100222
  Transmission Date: 20100710
  Serious: Yes (Other)
  Sender: FDA-Public Use
  Company Number: CA-SANOFI-AVENTIS-2010SA007663

PATIENT
  Age: 68 Year
  Sex: Female

DRUGS (7)
  1. MULTAQ [Suspect]
     Indication: ARRHYTHMIA
     Route: 048
     Dates: start: 20091230, end: 20100101
  2. MULTAQ [Suspect]
     Dosage: HALF OF A TABLET TWICE DAILY.
     Route: 048
     Dates: start: 20100109
  3. LANOXIN [Concomitant]
     Route: 048
  4. WARFARIN SODIUM [Concomitant]
     Route: 048
  5. BISOPROLOL [Concomitant]
     Indication: BLOOD PRESSURE
     Route: 048
  6. PRAVASTATIN [Concomitant]
     Route: 048
  7. DIDRONEL [Concomitant]
     Indication: OSTEOPOROSIS
     Route: 048

REACTIONS (3)
  - INCORRECT DOSE ADMINISTERED [None]
  - LOSS OF CONSCIOUSNESS [None]
  - PULSE ABSENT [None]
